FAERS Safety Report 26018166 (Version 1)
Quarter: 2025Q4

REPORT INFORMATION
  Report Type: Spontaneous
  Country: EU (occurrence: EU)
  Receive Date: 20251110
  Receipt Date: 20251110
  Transmission Date: 20260118
  Serious: Yes (Hospitalization, Other)
  Sender: SOMERSET THERAPEUTICS, LLC
  Company Number: EU-MIT-25-75-PL-2025-SOM-LIT-00086

PATIENT
  Age: 45 Year
  Sex: Female

DRUGS (2)
  1. CYANOCOBALAMIN [Suspect]
     Active Substance: CYANOCOBALAMIN
     Indication: Vitamin supplementation
     Route: 030
     Dates: start: 202011
  2. COBALAMIN [Suspect]
     Active Substance: COBALAMIN
     Indication: Vitamin supplementation
     Dosage: FIVE INJECTIONS
     Route: 065

REACTIONS (12)
  - Bipolar disorder [Recovered/Resolved]
  - Insomnia [Recovered/Resolved]
  - Akathisia [Recovered/Resolved]
  - Tic [Not Recovered/Not Resolved]
  - Restlessness [Recovered/Resolved]
  - Perseveration [Recovered/Resolved]
  - Depressed mood [Recovered/Resolved]
  - Hypoaesthesia [Recovered/Resolved]
  - Aggression [Recovered/Resolved]
  - Hyponatraemia [Recovered/Resolved]
  - Intentional product misuse [Unknown]
  - Overdose [Unknown]

NARRATIVE: CASE EVENT DATE: 20201101
